FAERS Safety Report 8783062 (Version 1)
Quarter: 2012Q4

REPORT INFORMATION
  Report Type: Report from Study
  Country: US (occurrence: US)
  Receive Date: 20120913
  Receipt Date: 20120913
  Transmission Date: 20130627
  Serious: No
  Sender: FDA-Public Use
  Company Number: US-VERTEX PHARMACEUTICAL INC.-AE-2012-009570

PATIENT
  Sex: Male
  Weight: 68 kg

DRUGS (6)
  1. INCIVEK [Suspect]
     Indication: HEPATITIS C
     Route: 048
     Dates: start: 201206
  2. RIBAVIRIN [Concomitant]
     Indication: HEPATITIS C
     Route: 048
     Dates: start: 201206
  3. PEGASYS [Concomitant]
     Indication: HEPATITIS C
     Route: 058
     Dates: start: 201206
  4. OMEPRAZOLE [Concomitant]
     Route: 048
  5. ALPRAZOLAM [Concomitant]
     Route: 048
  6. LOSARTAN POTASSIUM [Concomitant]
     Route: 048

REACTIONS (1)
  - Nausea [Unknown]
